FAERS Safety Report 15390271 (Version 3)
Quarter: 2020Q1

REPORT INFORMATION
  Report Type: Report from Study
  Country: IT (occurrence: IT)
  Receive Date: 20180917
  Receipt Date: 20200318
  Transmission Date: 20200409
  Serious: Yes (Other)
  Sender: FDA-Public Use
  Company Number: PHHY2018IT039666

PATIENT
  Age: 29 Year
  Sex: Female

DRUGS (1)
  1. SIGNIFOR [Suspect]
     Active Substance: PASIREOTIDE DIASPARTATE
     Indication: PITUITARY-DEPENDENT CUSHING^S SYNDROME
     Dosage: UNK
     Route: 058
     Dates: start: 20170504

REACTIONS (9)
  - Nausea [Recovered/Resolved]
  - Diabetes mellitus [Recovering/Resolving]
  - Confusional state [Unknown]
  - Hypoglycaemia [Recovered/Resolved]
  - Abdominal pain upper [Unknown]
  - Nausea [Recovered/Resolved]
  - Fatigue [Unknown]
  - Irritability [Unknown]
  - Headache [Unknown]

NARRATIVE: CASE EVENT DATE: 20170504
